FAERS Safety Report 8934060 (Version 2)
Quarter: 2015Q2

REPORT INFORMATION
  Report Type: Spontaneous
  Country: US (occurrence: US)
  Receive Date: 20121129
  Receipt Date: 20150423
  Transmission Date: 20150821
  Serious: Yes (Hospitalization, Congenital Anomaly)
  Sender: FDA-Public Use
  Company Number: US-ELI_LILLY_AND_COMPANY-US201211005872

PATIENT

DRUGS (1)
  1. PROZAC [Suspect]
     Active Substance: FLUOXETINE HYDROCHLORIDE
     Indication: PRODUCT USED FOR UNKNOWN INDICATION
     Dosage: 1 DF, UNKNOWN
     Route: 064
     Dates: start: 1987, end: 19980621

REACTIONS (6)
  - Pyloric stenosis [Unknown]
  - Tibial torsion [Recovered/Resolved]
  - Femoral anteversion [Recovering/Resolving]
  - Talipes [Recovered/Resolved]
  - Foetal exposure during pregnancy [Unknown]
  - Metatarsus primus varus [Recovering/Resolving]
